FAERS Safety Report 6651118-4 (Version None)
Quarter: 2010Q1

REPORT INFORMATION
  Report Type: 
  Country: None (occurrence: None)
  Receive Date: 20100323
  Receipt Date: 20100305
  Transmission Date: 20100710
  Serious: Yes (Other)
  Sender: FDA-Public Use
  Company Number: WWISSUE-409

PATIENT
  Age: 28 Year
  Sex: Female

DRUGS (9)
  1. PHENOBARBITAL TAB [Suspect]
     Dates: start: 20050101
  2. LORAZEPAN [Concomitant]
  3. TRILEPTAL [Concomitant]
  4. DEPAKOTE [Concomitant]
  5. PREVACID [Concomitant]
  6. PEPCID [Concomitant]
  7. LEVOTHYROXIMA [Concomitant]
  8. LACTULOSE [Concomitant]
  9. MIRALAX [Concomitant]

REACTIONS (7)
  - ABNORMAL BEHAVIOUR [None]
  - DRUG LEVEL INCREASED [None]
  - HYPOPHAGIA [None]
  - INAPPROPRIATE AFFECT [None]
  - INSOMNIA [None]
  - PRODUCT QUALITY ISSUE [None]
  - PRODUCT SUBSTITUTION ISSUE [None]
